FAERS Safety Report 25791415 (Version 1)
Quarter: 2025Q3

REPORT INFORMATION
  Report Type: Report from Study
  Country: US (occurrence: US)
  Receive Date: 20250911
  Receipt Date: 20250911
  Transmission Date: 20251021
  Serious: Yes (Other)
  Sender: UCB
  Company Number: US-UCBSA-2025055567

PATIENT
  Sex: Female

DRUGS (1)
  1. BIMEKIZUMAB [Suspect]
     Active Substance: BIMEKIZUMAB
     Indication: Product used for unknown indication
     Route: 058
     Dates: start: 20250527

REACTIONS (2)
  - Nephrolithiasis [Recovering/Resolving]
  - Renal stone removal [Recovering/Resolving]

NARRATIVE: CASE EVENT DATE: 20250101
